FAERS Safety Report 22590502 (Version 4)
Quarter: 2024Q1

REPORT INFORMATION
  Report Type: Spontaneous
  Country: HR (occurrence: None)
  Receive Date: 20230612
  Receipt Date: 20240221
  Transmission Date: 20240410
  Serious: No
  Sender: FDA-Public Use
  Company Number: HR-ROCHE-3363657

PATIENT
  Age: 28 Year
  Sex: Female

DRUGS (3)
  1. OCREVUS [Suspect]
     Active Substance: OCRELIZUMAB
     Indication: Multiple sclerosis
     Dosage: FIFTH CYCLE ON 23/FEB/2022
     Route: 065
     Dates: start: 20200212
  2. BACLOFEN [Concomitant]
     Active Substance: BACLOFEN
  3. MIRABEGRON [Concomitant]
     Active Substance: MIRABEGRON

REACTIONS (8)
  - COVID-19 [Unknown]
  - Hyposmia [Unknown]
  - Muscle spasms [Unknown]
  - Urinary incontinence [Unknown]
  - Urinary tract infection [Unknown]
  - Expanded disability status scale score increased [Unknown]
  - Nervous system disorder [Unknown]
  - Maternal exposure before pregnancy [Unknown]

NARRATIVE: CASE EVENT DATE: 20211201
